FAERS Safety Report 6255521-6 (Version None)
Quarter: 2009Q3

REPORT INFORMATION
  Report Type: 
  Country: None (occurrence: None)
  Receive Date: 20090702
  Receipt Date: 20090626
  Transmission Date: 20100115
  Serious: Yes (Life-Threatening, Hospitalization)
  Sender: FDA-Public Use
  Company Number: CA-AMGEN-US295884

PATIENT
  Sex: Male

DRUGS (7)
  1. PANITUMUMAB [Suspect]
     Indication: SQUAMOUS CELL CARCINOMA
     Route: 042
     Dates: start: 20080508, end: 20081114
  2. CISPLATIN [Concomitant]
     Route: 042
     Dates: start: 20080508, end: 20080702
  3. FLUOROURACIL [Concomitant]
     Route: 042
     Dates: start: 20080508, end: 20080702
  4. ASPIRIN [Concomitant]
     Dates: end: 20080701
  5. AMLODIPINE [Concomitant]
     Dates: end: 20080701
  6. EPROSARTAN [Concomitant]
     Dates: end: 20080701
  7. ATORVASTATIN CALCIUM [Concomitant]
     Dates: end: 20080701

REACTIONS (7)
  - ANAEMIA [None]
  - CLOSTRIDIUM DIFFICILE COLITIS [None]
  - DEEP VEIN THROMBOSIS [None]
  - DEHYDRATION [None]
  - GASTROINTESTINAL HAEMORRHAGE [None]
  - MELAENA [None]
  - NEUTROPENIA [None]
